FAERS Safety Report 10979065 (Version 4)
Quarter: 2015Q2

REPORT INFORMATION
  Report Type: Spontaneous
  Country: US (occurrence: None)
  Receive Date: 20150326
  Receipt Date: 20150427
  Transmission Date: 20150821
  Serious: Yes (Life-Threatening, Hospitalization, Other)
  Sender: FDA-Public Use
  Company Number: 003-259

PATIENT
  Age: 12 Year
  Sex: Male

DRUGS (2)
  1. UNKNOWN PAIN MEDICATION [Concomitant]
     Active Substance: UNSPECIFIED INGREDIENT
  2. CROFAB [Suspect]
     Active Substance: CROTALIDAE POLYVALENT IMMUNE FAB (OVINE)
     Indication: SNAKE BITE
     Dosage: PARENTERAL
     Route: 051
     Dates: start: 201503

REACTIONS (3)
  - Platelet count decreased [None]
  - Blood fibrinogen decreased [None]
  - Incorrect drug administration duration [None]

NARRATIVE: CASE EVENT DATE: 201503
